FAERS Safety Report 5870791-1 (Version None)
Quarter: 2008Q3

REPORT INFORMATION
  Report Type: 
  Country: None (occurrence: None)
  Receive Date: 20080904
  Receipt Date: 20080828
  Transmission Date: 20090109
  Serious: Yes (Hospitalization)
  Sender: FDA-Public Use
  Company Number: US-ABBOTT-08P-163-0455849-00

PATIENT
  Sex: Female
  Weight: 75.364 kg

DRUGS (5)
  1. DEPAKOTE ER [Suspect]
     Indication: DEPRESSION
     Route: 048
     Dates: start: 20030101, end: 20080501
  2. DEPAKOTE ER [Suspect]
     Indication: BIPOLAR DISORDER
  3. OXYCODONE HCL [Concomitant]
     Indication: BACK PAIN
     Route: 048
  4. FIORCET [Concomitant]
     Indication: MIGRAINE
     Route: 048
  5. ACETAMINOPHEN [Concomitant]
     Indication: MIGRAINE
     Route: 048

REACTIONS (8)
  - ALOPECIA [None]
  - ANAEMIA [None]
  - BIOPSY BONE MARROW ABNORMAL [None]
  - CONTUSION [None]
  - FALL [None]
  - HEAD INJURY [None]
  - WALKING AID USER [None]
  - WEIGHT DECREASED [None]
